FAERS Safety Report 5524843-6 (Version None)
Quarter: 2007Q4

REPORT INFORMATION
  Report Type: 
  Country: None (occurrence: None)
  Receive Date: 20071116
  Receipt Date: 20071107
  Transmission Date: 20080405
  Serious: Yes (Other)
  Sender: FDA-Public Use
  Company Number: 2007JP005094

PATIENT
  Age: 19 Year
  Sex: Female

DRUGS (4)
  1. PROGRAF [Suspect]
     Dosage: 2.5 MG, BID ; 0.5 MG, BID
  2. PREDNISOLONE [Suspect]
  3. AZATHIOPRINE [Suspect]
  4. CYCLOSPORINE [Suspect]

REACTIONS (3)
  - ANGIOEDEMA [None]
  - HEADACHE [None]
  - LEIOMYOSARCOMA [None]
